FAERS Safety Report 9649509 (Version 1)
Quarter: 2013Q4

REPORT INFORMATION
  Report Type: Report from Study
  Country: PK (occurrence: PK)
  Receive Date: 20131028
  Receipt Date: 20131028
  Transmission Date: 20140711
  Serious: Yes (Death)
  Sender: FDA-Public Use
  Company Number: PHHY2013PK121578

PATIENT
  Age: 70 Year
  Sex: Male

DRUGS (3)
  1. ACLASTA [Suspect]
     Indication: OSTEOPOROSIS
     Dosage: UNK ONCE A YEAR
     Route: 042
  2. ACLASTA [Suspect]
     Dosage: UNK ONCE A YEAR
     Route: 042
     Dates: start: 20121108
  3. CALCIUM [Concomitant]
     Indication: OSTEOPOROSIS
     Dosage: UNK UKN, QD
     Route: 048
     Dates: start: 20121105, end: 20130815

REACTIONS (1)
  - Hepatitis C [Fatal]
